FAERS Safety Report 26183972 (Version 1)
Quarter: 2025Q4

REPORT INFORMATION
  Report Type: Spontaneous
  Country: US (occurrence: US)
  Receive Date: 20251222
  Receipt Date: 20251222
  Transmission Date: 20260118
  Serious: Yes (Life-Threatening, Hospitalization)
  Sender: MACLEODS
  Company Number: US-MLMSERVICE-20251204-PI738715-00322-1

PATIENT

DRUGS (1)
  1. TRAMADOL [Suspect]
     Active Substance: TRAMADOL
     Indication: Product used for unknown indication
     Dosage: 14 TABLETS OF TRAMADOL 50 MG THREE WEEKS PRIOR TO ADMISSION
     Route: 065

REACTIONS (4)
  - Bradycardia [Unknown]
  - Metabolic acidosis [Recovered/Resolved]
  - Hypotension [Unknown]
  - Hypoglycaemia [Recovered/Resolved]
